FAERS Safety Report 12534786 (Version 2)
Quarter: 2016Q3

REPORT INFORMATION
  Report Type: Spontaneous
  Country: US (occurrence: US)
  Receive Date: 20160706
  Receipt Date: 20160927
  Transmission Date: 20161109
  Serious: Yes (Hospitalization)
  Sender: FDA-Public Use
  Company Number: US-BEH-2016070802

PATIENT
  Sex: Female

DRUGS (1)
  1. HIZENTRA [Suspect]
     Active Substance: HUMAN IMMUNOGLOBULIN G
     Indication: PRODUCT USED FOR UNKNOWN INDICATION
     Route: 065

REACTIONS (8)
  - Ill-defined disorder [Unknown]
  - Joint injury [Unknown]
  - Head injury [Unknown]
  - Neck injury [Unknown]
  - Back injury [Unknown]
  - Smoke sensitivity [Unknown]
  - Blood pressure increased [Unknown]
  - Fall [Unknown]
